FAERS Safety Report 23722002 (Version 1)
Quarter: 2024Q2

REPORT INFORMATION
  Report Type: Spontaneous
  Country: US (occurrence: None)
  Receive Date: 20240408
  Receipt Date: 20240408
  Transmission Date: 20240716
  Serious: No
  Sender: FDA-Public Use
  Company Number: None

PATIENT
  Age: 76 Year
  Sex: Male

DRUGS (3)
  1. CAPECITABINE [Suspect]
     Active Substance: CAPECITABINE
     Indication: Rectal cancer
     Route: 048
     Dates: start: 20240109
  2. OMNIPAQUE [Concomitant]
     Active Substance: IOHEXOL
  3. OMNIPAQUE [Concomitant]
     Active Substance: IOHEXOL

REACTIONS (1)
  - Infection [None]

NARRATIVE: CASE EVENT DATE: 20240202
